FAERS Safety Report 10488452 (Version 2)
Quarter: 2014Q4

REPORT INFORMATION
  Report Type: Spontaneous
  Country: IT (occurrence: None)
  Receive Date: 20140917
  Receipt Date: 20141010
  Transmission Date: 20150528
  Serious: Yes (Life-Threatening)
  Sender: FDA-Public Use
  Company Number: GAM-313-14-IT

PATIENT
  Age: 51 Year
  Sex: Female

DRUGS (9)
  1. METHYLPREDNISOLONE. [Concomitant]
     Active Substance: METHYLPREDNISOLONE
  2. INSULIN LISPRO [Concomitant]
     Active Substance: INSULIN LISPRO
  3. OCTAGAM IMMUNE GLOBULIN (HUMAN) [Suspect]
     Active Substance: HUMAN IMMUNOGLOBULIN G
     Indication: INTERSTITIAL LUNG DISEASE
     Dosage: 20 G (1X 1/D), INTRAVENOUS (NOT OTHERWISE SPECIFIED)?
     Route: 042
     Dates: start: 20140418, end: 20140419
  4. ENOXAPARIN SODIUM. [Concomitant]
     Active Substance: ENOXAPARIN SODIUM
  5. INSULINE GLARGINE [Concomitant]
  6. OMEPRAZOLE. [Concomitant]
     Active Substance: OMEPRAZOLE
  7. ACETYLSALICYLIC ACID [Concomitant]
     Active Substance: ASPIRIN
  8. IVABRADINE [Concomitant]
     Active Substance: IVABRADINE
  9. FUROSEMIDE. [Concomitant]
     Active Substance: FUROSEMIDE

REACTIONS (8)
  - Haemoglobin decreased [None]
  - Platelet count decreased [None]
  - Dyspnoea [None]
  - Oxygen saturation decreased [None]
  - White blood cell count decreased [None]
  - Tachycardia [None]
  - Pyrexia [None]
  - Tachypnoea [None]

NARRATIVE: CASE EVENT DATE: 20140419
